FAERS Safety Report 4412115-2 (Version None)
Quarter: 2004Q3

REPORT INFORMATION
  Report Type: 
  Country: None (occurrence: None)
  Receive Date: 20040730
  Receipt Date: 20040720
  Transmission Date: 20050211
  Serious: Yes (Hospitalization)
  Sender: FDA-Public Use
  Company Number: PT-GLAXOSMITHKLINE-B0340205A

PATIENT
  Age: 42 Year
  Sex: Female

DRUGS (4)
  1. AUGMENTIN '125' [Suspect]
     Indication: DRUG USE FOR UNKNOWN INDICATION
     Route: 048
     Dates: start: 20040401
  2. OMEPRAZOLE [Concomitant]
     Route: 048
  3. LISINOPRIL DIHYDRATE [Concomitant]
     Route: 048
  4. NIMESULIDE [Concomitant]
     Route: 048
     Dates: start: 20040401

REACTIONS (5)
  - COUGH [None]
  - EYE OEDEMA [None]
  - FACE OEDEMA [None]
  - PRURITUS GENERALISED [None]
  - URTICARIA [None]
